FAERS Safety Report 7909434-1 (Version None)
Quarter: 2011Q4

REPORT INFORMATION
  Report Type: 
  Country: None (occurrence: None)
  Receive Date: 20111111
  Receipt Date: 20111110
  Transmission Date: 20120403
  Serious: Yes (Hospitalization)
  Sender: FDA-Public Use
  Company Number: DE-PFIZER INC-2005024182

PATIENT
  Age: 59 Year
  Sex: Male
  Weight: 85 kg

DRUGS (4)
  1. METOPROLOL TARTRATE [Concomitant]
     Route: 065
  2. TESTOSTERONE ENANTATE [Concomitant]
     Route: 065
  3. SOMATROPIN [Suspect]
     Indication: HYPOPITUITARISM
     Dosage: UNK MG, 1X/DAY
     Route: 058
     Dates: start: 19960419
  4. CORTISONE ACETATE [Concomitant]
     Dosage: 25 MG, 1X/DAY
     Route: 065

REACTIONS (1)
  - HYPERTENSION [None]
